FAERS Safety Report 14392636 (Version 1)
Quarter: 2018Q1

REPORT INFORMATION
  Report Type: Spontaneous
  Country: US (occurrence: US)
  Receive Date: 20180112
  Receipt Date: 20180112
  Transmission Date: 20180509
  Serious: Yes (Hospitalization, Other)
  Sender: FDA-Public Use
  Company Number: None

PATIENT
  Age: 57 Year
  Sex: Male
  Weight: 58.05 kg

DRUGS (1)
  1. CRESTOR [Suspect]
     Active Substance: ROSUVASTATIN CALCIUM
     Indication: BLOOD CHOLESTEROL INCREASED
     Route: 048
     Dates: start: 20161001, end: 20161003

REACTIONS (5)
  - Presyncope [None]
  - Wrong drug administered [None]
  - Liver function test abnormal [None]
  - Drug dispensing error [None]
  - Product physical issue [None]

NARRATIVE: CASE EVENT DATE: 20161003
